FAERS Safety Report 20021974 (Version 1)
Quarter: 2021Q4

REPORT INFORMATION
  Report Type: Spontaneous
  Country: US (occurrence: US)
  Receive Date: 20211102
  Receipt Date: 20211102
  Transmission Date: 20220304
  Serious: No
  Sender: FDA-Public Use
  Company Number: US-BoehringerIngelheim-2021-BI-135725

PATIENT
  Sex: Female

DRUGS (1)
  1. CATAPRES [Suspect]
     Active Substance: CLONIDINE HYDROCHLORIDE
     Indication: Product used for unknown indication
     Dates: start: 2013

REACTIONS (3)
  - Drug ineffective [Unknown]
  - Hypertension [Unknown]
  - Blood pressure fluctuation [Unknown]
